FAERS Safety Report 5240906-7 (Version None)
Quarter: 2007Q1

REPORT INFORMATION
  Report Type: 
  Country: None (occurrence: None)
  Receive Date: 20061201
  Receipt Date: 20060906
  Transmission Date: 20070707
  Serious: No
  Sender: FDA-Public Use
  Company Number: 2006PV020816

PATIENT
  Age: 68 Year
  Sex: Female

DRUGS (5)
  1. BYETTA [Suspect]
     Indication: DIABETES MELLITUS
     Dosage: 5 MCG;BID;SC
     Route: 058
     Dates: start: 20060831
  2. METFORMIN HCL [Concomitant]
  3. ACTOS /USA/ [Concomitant]
  4. GLUCOTROL XL [Concomitant]
  5. KEFLEX [Concomitant]

REACTIONS (5)
  - BLOOD GLUCOSE DECREASED [None]
  - BLOOD GLUCOSE INCREASED [None]
  - CHILLS [None]
  - FEELING JITTERY [None]
  - HYPERHIDROSIS [None]
